FAERS Safety Report 23634534 (Version 2)
Quarter: 2024Q1

REPORT INFORMATION
  Report Type: Spontaneous
  Country: GB (occurrence: GB)
  Receive Date: 20240315
  Receipt Date: 20240320
  Transmission Date: 20240410
  Serious: Yes (Hospitalization, Other)
  Sender: FDA-Public Use
  Company Number: GB-Merck Healthcare KGaA-2023497535

PATIENT
  Sex: Male

DRUGS (1)
  1. REBIF [Suspect]
     Active Substance: INTERFERON BETA-1A
     Indication: Multiple sclerosis
     Route: 058
     Dates: start: 2015

REACTIONS (6)
  - Dementia [Unknown]
  - Fall [Unknown]
  - Rib fracture [Unknown]
  - Localised infection [Unknown]
  - Depression [Unknown]
  - Treatment noncompliance [Unknown]
